FAERS Safety Report 7520837-X (Version None)
Quarter: 2011Q2

REPORT INFORMATION
  Report Type: 
  Country: None (occurrence: None)
  Receive Date: 20110603
  Receipt Date: 20100706
  Transmission Date: 20111010
  Serious: Yes (Hospitalization)
  Sender: FDA-Public Use
  Company Number: JP-BAYER-201012734BYL

PATIENT
  Age: 74 Year
  Sex: Male
  Weight: 58 kg

DRUGS (10)
  1. NEXAVAR [Suspect]
     Route: 048
     Dates: start: 20100618
  2. ROSUVASTATIN CALCIUM [Concomitant]
     Indication: DYSLIPIDAEMIA
  3. UREA [Concomitant]
     Indication: PROPHYLAXIS
     Dosage: AS REQUIRED
     Route: 061
     Dates: start: 20100514
  4. NEXAVAR [Suspect]
     Indication: HEPATIC NEOPLASM MALIGNANT
     Dosage: 400 MG, QD
     Route: 048
     Dates: start: 20100514, end: 20100520
  5. ROSUVASTATIN CALCIUM [Concomitant]
     Indication: HYPERLIPIDAEMIA
     Route: 048
     Dates: start: 20100508, end: 20100518
  6. REBAMIPIDE [Concomitant]
     Indication: GASTRITIS PROPHYLAXIS
     Route: 048
     Dates: start: 20100514, end: 20100518
  7. OLMESARTAN MEDOXOMIL [Concomitant]
     Indication: HYPERTENSION
     Route: 048
     Dates: start: 20100508
  8. AMLODIPINE BESYLATE [Concomitant]
     Route: 048
     Dates: start: 20100508
  9. AMLODIPINE BESYLATE [Concomitant]
     Indication: HYPERTENSION
     Route: 048
     Dates: start: 20100430, end: 20100507
  10. LACTOBACILLUS CASEI [Concomitant]
     Indication: GASTRITIS PROPHYLAXIS
     Route: 065
     Dates: start: 20100514, end: 20100518

REACTIONS (4)
  - VOMITING [None]
  - DECREASED APPETITE [None]
  - GASTRIC ULCER [None]
  - NAUSEA [None]
